FAERS Safety Report 13652300 (Version 1)
Quarter: 2017Q2

REPORT INFORMATION
  Report Type: Spontaneous
  Country: CA (occurrence: CA)
  Receive Date: 20170614
  Receipt Date: 20170614
  Transmission Date: 20170830
  Serious: Yes (Hospitalization)
  Sender: FDA-Public Use
  Company Number: CA-TEVA-777831ACC

PATIENT
  Age: 86 Year
  Sex: Female
  Weight: 84 kg

DRUGS (8)
  1. ATORVASTATIN CALCIUM. [Concomitant]
     Active Substance: ATORVASTATIN CALCIUM
  2. TEVA-SITAGLIPTIN [Concomitant]
  3. METOPROLOL. [Concomitant]
     Active Substance: METOPROLOL
  4. TERAZOSIN [Concomitant]
     Active Substance: TERAZOSIN\TERAZOSIN HYDROCHLORIDE
  5. CYANOCOBALAMIN. [Concomitant]
     Active Substance: CYANOCOBALAMIN
  6. GLICLAZIDE MR [Concomitant]
     Active Substance: GLICLAZIDE
  7. DILTIAZEM. [Concomitant]
     Active Substance: DILTIAZEM
  8. PANTOPRAZOLE [Suspect]
     Active Substance: PANTOPRAZOLE
     Indication: DUODENAL ULCER
     Dosage: 80 MILLIGRAM DAILY;
     Route: 048

REACTIONS (4)
  - Upper respiratory tract infection [Recovering/Resolving]
  - Acute kidney injury [Recovering/Resolving]
  - Anaemia [Recovering/Resolving]
  - Blood creatinine abnormal [Recovering/Resolving]
